FAERS Safety Report 19804104 (Version 2)
Quarter: 2021Q3

REPORT INFORMATION
  Report Type: Spontaneous
  Country: US (occurrence: US)
  Receive Date: 20210908
  Receipt Date: 20210916
  Transmission Date: 20211014
  Serious: Yes (Other)
  Sender: FDA-Public Use
  Company Number: US-PFIZER INC-202101143752

PATIENT
  Age: 6 Year
  Sex: Male
  Weight: 33 kg

DRUGS (1)
  1. EPINEPHRINE. [Suspect]
     Active Substance: EPINEPHRINE
     Dosage: 0.15 MG, PRN (AS NEEDED FOR ALLERGIC REACTION)
     Route: 030

REACTIONS (4)
  - Product quality issue [Unknown]
  - Accidental exposure to product [Unknown]
  - Injury associated with device [Unknown]
  - Hand fracture [Unknown]

NARRATIVE: CASE EVENT DATE: 20210825
